FAERS Safety Report 22042789 (Version 3)
Quarter: 2023Q1

REPORT INFORMATION
  Report Type: Spontaneous
  Country: FR (occurrence: FR)
  Receive Date: 20230228
  Receipt Date: 20230325
  Transmission Date: 20230417
  Serious: Yes (Other)
  Sender: FDA-Public Use
  Company Number: FR-002147023-NVSC2023FR043885

PATIENT
  Age: 86 Year
  Sex: Female

DRUGS (3)
  1. AMOXICILLIN [Suspect]
     Active Substance: AMOXICILLIN
     Indication: Bronchitis viral
     Dosage: 500 MG, QID (4 CAPSULES PER DAY)
     Route: 065
  2. EXFORGE (VALSARTAN/AMLODIPINE BESILATE) [Concomitant]
     Indication: Product used for unknown indication
     Dosage: UNK, QD (MORNING)
     Route: 065
  3. BISOPROLOL [Concomitant]
     Active Substance: BISOPROLOL
     Indication: Product used for unknown indication
     Dosage: UNK, QD (MORNING)
     Route: 065

REACTIONS (9)
  - Dysentery [Unknown]
  - Abdominal pain [Unknown]
  - Ageusia [Unknown]
  - Nausea [Unknown]
  - Anosmia [Unknown]
  - Dry mouth [Unknown]
  - Dysgeusia [Unknown]
  - Gastric disorder [Unknown]
  - Product use in unapproved indication [Unknown]
